FAERS Safety Report 5136566-6 (Version None)
Quarter: 2006Q4

REPORT INFORMATION
  Report Type: 
  Country: None (occurrence: None)
  Receive Date: 20061023
  Receipt Date: 20060501
  Transmission Date: 20070319
  Serious: Yes (Other)
  Sender: FDA-Public Use
  Company Number: CHPA2006US04431

PATIENT
  Age: 35 Year
  Sex: Male
  Weight: 106.6 kg

DRUGS (1)
  1. TAVIST [Suspect]
     Indication: SNEEZING
     Dosage: 1 MG, ONCE/SINGLE, ORAL
     Route: 048
     Dates: start: 20060501, end: 20060501

REACTIONS (2)
  - EXPIRED DRUG ADMINISTERED [None]
  - PARAESTHESIA [None]
